FAERS Safety Report 12666955 (Version 1)
Quarter: 2016Q3

REPORT INFORMATION
  Report Type: Spontaneous
  Country: FR (occurrence: FR)
  Receive Date: 20160819
  Receipt Date: 20160819
  Transmission Date: 20161109
  Serious: Yes (Death)
  Sender: FDA-Public Use
  Company Number: FR-ROCHE-1816344

PATIENT
  Age: 63 Year
  Sex: Male

DRUGS (13)
  1. PREVISCAN (FRANCE) [Suspect]
     Active Substance: FLUINDIONE
     Indication: ATRIAL FIBRILLATION
     Route: 048
     Dates: end: 20160520
  2. BISOPROLOL [Concomitant]
     Active Substance: BISOPROLOL
  3. VITAMIN B6 [Concomitant]
     Active Substance: PYRIDOXINE HYDROCHLORIDE
  4. CARBOPLATINE [Concomitant]
     Active Substance: CARBOPLATIN
     Indication: LUNG CANCER METASTATIC
     Route: 065
  5. TAXOL [Concomitant]
     Active Substance: PACLITAXEL
     Indication: LUNG CANCER METASTATIC
     Route: 065
  6. PREGABALINE [Concomitant]
     Active Substance: PREGABALIN
  7. AVASTIN [Suspect]
     Active Substance: BEVACIZUMAB
     Indication: LUNG CANCER METASTATIC
     Route: 041
     Dates: start: 201511, end: 20160510
  8. GLICLAZIDE [Concomitant]
     Active Substance: GLICLAZIDE
  9. ALLOPURINOL. [Concomitant]
     Active Substance: ALLOPURINOL
     Route: 065
  10. LEVOCARNITINE. [Concomitant]
     Active Substance: LEVOCARNITINE
  11. VITAMIN B1 [Concomitant]
     Active Substance: THIAMINE HYDROCHLORIDE
  12. FENOFIBRATE. [Concomitant]
     Active Substance: FENOFIBRATE
  13. PANTOPRAZOLE [Concomitant]
     Active Substance: PANTOPRAZOLE SODIUM

REACTIONS (1)
  - Tumour haemorrhage [Fatal]

NARRATIVE: CASE EVENT DATE: 20160520
